FAERS Safety Report 7301081-8 (Version None)
Quarter: 2011Q1

REPORT INFORMATION
  Report Type: 
  Country: None (occurrence: None)
  Receive Date: 20110218
  Receipt Date: 20110204
  Transmission Date: 20110831
  Serious: Yes (Hospitalization, Other)
  Sender: FDA-Public Use
  Company Number: JP-CELGENEUS-087-21880-11020770

PATIENT
  Age: 65 Year
  Sex: Female
  Weight: 49 kg

DRUGS (11)
  1. ITRIZOLE [Concomitant]
     Indication: PROPHYLAXIS
     Route: 048
     Dates: start: 20091224, end: 20101024
  2. REVLIMID [Suspect]
     Indication: MULTIPLE MYELOMA
     Route: 048
     Dates: start: 20101019, end: 20101024
  3. BENAMBAX [Concomitant]
     Indication: PROPHYLAXIS
     Route: 041
     Dates: start: 20101020, end: 20101020
  4. TAKEPRON [Concomitant]
     Indication: PROPHYLAXIS
     Route: 048
     Dates: start: 20091224, end: 20101024
  5. PREDONINE [Concomitant]
     Route: 048
     Dates: start: 20100802, end: 20101024
  6. SLOW-K [Concomitant]
     Route: 048
     Dates: start: 20100724, end: 20101024
  7. URSO 250 [Concomitant]
     Route: 048
     Dates: start: 20100922, end: 20101024
  8. LENDORMIN D [Concomitant]
     Route: 048
     Dates: start: 20080726, end: 20101024
  9. FOSAMAC [Concomitant]
     Indication: PROPHYLAXIS
     Route: 048
     Dates: start: 20100318, end: 20101024
  10. FUNGUARD [Concomitant]
     Indication: PROPHYLAXIS
     Route: 041
     Dates: start: 20101026, end: 20101115
  11. LENADEX [Suspect]
     Indication: MULTIPLE MYELOMA
     Route: 048
     Dates: start: 20101019, end: 20101022

REACTIONS (6)
  - BLOOD LACTATE DEHYDROGENASE INCREASED [None]
  - HYPERGLYCAEMIA [None]
  - CYTOMEGALOVIRUS INFECTION [None]
  - PNEUMONIA [None]
  - THROMBOCYTOPENIA [None]
  - HEPATIC FUNCTION ABNORMAL [None]
